FAERS Safety Report 14686816 (Version 1)
Quarter: 2018Q1

REPORT INFORMATION
  Report Type: Spontaneous
  Country: US (occurrence: US)
  Receive Date: 20180327
  Receipt Date: 20180327
  Transmission Date: 20180509
  Serious: No
  Sender: FDA-Public Use
  Company Number: US-PFIZER INC-2018126082

PATIENT
  Age: 4 Year
  Sex: Male
  Weight: 15.42 kg

DRUGS (1)
  1. AZITHROMYCIN ANHYDROUS. [Suspect]
     Active Substance: AZITHROMYCIN ANHYDROUS
     Dosage: ONE AND A HALF TEASPOONS
     Route: 048
     Dates: start: 20180322, end: 20180322

REACTIONS (4)
  - Cough [Unknown]
  - Heart rate increased [Unknown]
  - Condition aggravated [Unknown]
  - Vomiting [Unknown]

NARRATIVE: CASE EVENT DATE: 20180322
